FAERS Safety Report 6286156-7 (Version None)
Quarter: 2009Q3

REPORT INFORMATION
  Report Type: 
  Country: None (occurrence: None)
  Receive Date: 20090728
  Receipt Date: 20090529
  Transmission Date: 20100115
  Serious: Yes (Other)
  Sender: FDA-Public Use
  Company Number: GB-JNJFOC-20090706727

PATIENT
  Age: 55 Year
  Sex: Male

DRUGS (9)
  1. ITRACONAZOLE [Suspect]
     Route: 065
  2. ITRACONAZOLE [Suspect]
     Indication: BRONCHOPULMONARY ASPERGILLOSIS ALLERGIC
     Route: 065
  3. FLUTICASONE [Interacting]
     Indication: DRUG USE FOR UNKNOWN INDICATION
     Dosage: 1-1.5 MG TWICE DAILY
     Route: 055
  4. MONTELUKAST [Concomitant]
     Route: 065
  5. FORMOTEROL FUMARATE [Concomitant]
     Route: 065
  6. TERBUTALINE SULFATE [Concomitant]
     Route: 065
  7. AMITRIPTYLINE HCL [Concomitant]
     Route: 065
  8. CODEINE PHOSPHATE [Concomitant]
     Route: 065
  9. ALENDRONATE SODIUM [Concomitant]
     Route: 065

REACTIONS (2)
  - CUSHING'S SYNDROME [None]
  - DRUG INTERACTION [None]
